FAERS Safety Report 6579161-4 (Version None)
Quarter: 2010Q1

REPORT INFORMATION
  Report Type: 
  Country: None (occurrence: None)
  Receive Date: 20100212
  Receipt Date: 20100201
  Transmission Date: 20100710
  Serious: Yes (Other)
  Sender: FDA-Public Use
  Company Number: PHEH2010US00878

PATIENT
  Age: 62 Year
  Sex: Female

DRUGS (8)
  1. GENTEAL (NVO) [Suspect]
     Indication: DRY EYE
     Dosage: UNK
     Dates: start: 20090226
  2. RESTASIS [Concomitant]
  3. PREMPRO [Concomitant]
     Indication: DRY EYE
     Dosage: UNK
  4. METOPROLOL TARTRATE [Concomitant]
     Indication: HYPERTENSION
     Dosage: UNK
     Route: 048
     Dates: start: 20090519
  5. ASPIRIN [Concomitant]
     Dosage: UNK
     Route: 048
     Dates: start: 20090519
  6. LORAZEPAM [Concomitant]
     Indication: ANXIETY
     Dosage: UNK
     Route: 048
     Dates: start: 20090519
  7. FOSAMAX [Concomitant]
     Indication: OSTEOARTHRITIS
     Dosage: UNK
     Route: 048
     Dates: start: 20090519
  8. NEXIUM [Concomitant]

REACTIONS (3)
  - CATARACT OPERATION [None]
  - FOREIGN BODY SENSATION IN EYES [None]
  - VISION BLURRED [None]
